FAERS Safety Report 17819891 (Version 2)
Quarter: 2020Q3

REPORT INFORMATION
  Report Type: Report from Study
  Country: None (occurrence: US)
  Receive Date: 20200524
  Receipt Date: 20200808
  Transmission Date: 20201102
  Serious: Yes (Other)
  Sender: FDA-Public Use
  Company Number: US-ABBVIE-20K-163-3411928-00

PATIENT
  Sex: Female
  Weight: 70 kg

DRUGS (4)
  1. VITAMIN D [Concomitant]
     Active Substance: VITAMIN D NOS
     Indication: CROHN^S DISEASE
  2. ZINC. [Concomitant]
     Active Substance: ZINC
     Indication: CROHN^S DISEASE
  3. HUMIRA [Suspect]
     Active Substance: ADALIMUMAB
     Indication: CROHN^S DISEASE
     Route: 058
  4. VSL 3 PROBIOTIC [Concomitant]
     Active Substance: PROBIOTICS NOS
     Indication: CROHN^S DISEASE

REACTIONS (9)
  - Abdominal abscess [Not Recovered/Not Resolved]
  - Wound complication [Not Recovered/Not Resolved]
  - Anaemia [Not Recovered/Not Resolved]
  - Wound infection [Not Recovered/Not Resolved]
  - Nausea [Not Recovered/Not Resolved]
  - Wound [Not Recovered/Not Resolved]
  - Crohn^s disease [Not Recovered/Not Resolved]
  - Vomiting [Not Recovered/Not Resolved]
  - Impaired healing [Unknown]

NARRATIVE: CASE EVENT DATE: 2011
